FAERS Safety Report 22103637 (Version 3)
Quarter: 2023Q2

REPORT INFORMATION
  Report Type: Report from Study
  Country: CA (occurrence: CA)
  Receive Date: 20230316
  Receipt Date: 20230605
  Transmission Date: 20230722
  Serious: Yes (Death, Other)
  Sender: FDA-Public Use
  Company Number: CA-OTSUKA-2023_006571

PATIENT
  Age: 55 Year
  Sex: Male

DRUGS (1)
  1. ARIPIPRAZOLE [Suspect]
     Active Substance: ARIPIPRAZOLE
     Indication: Product used for unknown indication
     Dosage: 400 MG, EVERY 28 DAYS
     Route: 030

REACTIONS (2)
  - Death [Fatal]
  - Blindness [Unknown]

NARRATIVE: CASE EVENT DATE: 20230510
